FAERS Safety Report 6164260-1 (Version None)
Quarter: 2009Q2

REPORT INFORMATION
  Report Type: 
  Country: None (occurrence: None)
  Receive Date: 20090420
  Receipt Date: 20090402
  Transmission Date: 20091009
  Serious: Yes (Hospitalization)
  Sender: FDA-Public Use
  Company Number: 8044748

PATIENT
  Age: 32 Year
  Sex: Male

DRUGS (3)
  1. KEPPRA [Suspect]
     Dosage: 1250 MG
     Dates: start: 20060801
  2. KEPPRA [Suspect]
     Dosage: 1500 MG
  3. ALCOHOL [Suspect]

REACTIONS (4)
  - AGGRESSION [None]
  - MIDDLE INSOMNIA [None]
  - NIGHTMARE [None]
  - SUICIDAL IDEATION [None]
